FAERS Safety Report 14892509 (Version 1)
Quarter: 2018Q2

REPORT INFORMATION
  Report Type: Spontaneous
  Country: US (occurrence: US)
  Receive Date: 20180426
  Receipt Date: 20180426
  Transmission Date: 20180711
  Serious: Yes (Other)
  Sender: FDA-Public Use
  Company Number: None

PATIENT
  Age: 64 Year
  Sex: Female
  Weight: 76.05 kg

DRUGS (15)
  1. PEPCID [Concomitant]
     Active Substance: FAMOTIDINE
  2. FLEXERIL [Concomitant]
     Active Substance: CYCLOBENZAPRINE HYDROCHLORIDE
  3. ULTRACET [Concomitant]
     Active Substance: ACETAMINOPHEN\TRAMADOL HYDROCHLORIDE
  4. PATONOL EYE DROPS [Concomitant]
  5. OMEGA 3 [Concomitant]
     Active Substance: OMEGA-3 FATTY ACIDS
  6. CELEBREX [Concomitant]
     Active Substance: CELECOXIB
  7. XANAX [Concomitant]
     Active Substance: ALPRAZOLAM
  8. PROAIR HFA [Concomitant]
     Active Substance: ALBUTEROL SULFATE
  9. SINGULAIR [Concomitant]
     Active Substance: MONTELUKAST SODIUM
  10. GLUCOSAMINE [Concomitant]
     Active Substance: GLUCOSAMINE
  11. DULOXITINE 30 MG [Suspect]
     Active Substance: DULOXETINE
     Indication: FIBROMYALGIA
     Dates: start: 20170920, end: 20171228
  12. BIOTIN [Concomitant]
     Active Substance: BIOTIN
  13. PREMARIN [Concomitant]
     Active Substance: ESTROGENS, CONJUGATED
  14. POTASSIUM [Concomitant]
     Active Substance: POTASSIUM
  15. VITAMIN D [Concomitant]
     Active Substance: CHOLECALCIFEROL

REACTIONS (12)
  - Anxiety [None]
  - Alopecia [None]
  - Rash [None]
  - Withdrawal syndrome [None]
  - Hyperhidrosis [None]
  - Fatigue [None]
  - Abdominal pain upper [None]
  - Paraesthesia [None]
  - Weight increased [None]
  - Nightmare [None]
  - Abdominal distension [None]
  - Vibratory sense increased [None]

NARRATIVE: CASE EVENT DATE: 20170928
